FAERS Safety Report 12220943 (Version 2)
Quarter: 2018Q2

REPORT INFORMATION
  Report Type: Spontaneous
  Country: US (occurrence: US)
  Receive Date: 20160330
  Receipt Date: 20180604
  Transmission Date: 20180711
  Serious: Yes (Death, Hospitalization, Other)
  Sender: FDA-Public Use
  Company Number: US-NOVOPROD-485385

PATIENT
  Age: 71 Year
  Sex: Male
  Weight: 87.53 kg

DRUGS (3)
  1. METFORMIN [Concomitant]
     Active Substance: METFORMIN HYDROCHLORIDE
     Indication: TYPE 2 DIABETES MELLITUS
     Dosage: UNK
     Route: 048
  2. VICTOZA [Suspect]
     Active Substance: LIRAGLUTIDE
     Indication: TYPE 2 DIABETES MELLITUS
     Dosage: 1.8 MG, UNK
     Route: 058
     Dates: start: 20110606, end: 20150616
  3. BYETTA [Suspect]
     Active Substance: EXENATIDE
     Indication: TYPE 2 DIABETES MELLITUS
     Dosage: 18 MG, UNK
     Route: 058
     Dates: start: 20060826, end: 201106

REACTIONS (7)
  - Pancreatic carcinoma [Not Recovered/Not Resolved]
  - Metastatic neoplasm [Fatal]
  - Cardiopulmonary failure [Fatal]
  - Transitional cell cancer of the renal pelvis and ureter [Recovered/Resolved]
  - Bladder cancer [Fatal]
  - Emotional distress [Not Recovered/Not Resolved]
  - Anxiety [Not Recovered/Not Resolved]

NARRATIVE: CASE EVENT DATE: 20120530
